FAERS Safety Report 4910492-7 (Version None)
Quarter: 2006Q1

REPORT INFORMATION
  Report Type: 
  Country: None (occurrence: None)
  Receive Date: 20060209
  Receipt Date: 20060203
  Transmission Date: 20060701
  Serious: Yes (Death)
  Sender: FDA-Public Use
  Company Number: 2006-00420

PATIENT
  Age: 51 Year
  Sex: Female

DRUGS (5)
  1. FLUOROURACIL [Suspect]
     Indication: BREAST CANCER
     Dates: start: 20050101, end: 20050101
  2. CYCLOPHOSPHAMIDE [Suspect]
     Indication: BREAST CANCER
     Dates: start: 20050101, end: 20050101
  3. EPIRUBICIN [Suspect]
     Indication: BREAST CANCER
     Dates: start: 20050101, end: 20050101
  4. ADRIAMYCIN PFS [Suspect]
     Indication: BREAST CANCER
     Dates: start: 20050101, end: 20050101
  5. METHOTREXATE [Suspect]
     Indication: BREAST CANCER
     Dates: start: 20050101, end: 20050101

REACTIONS (6)
  - ACUTE MYELOID LEUKAEMIA [None]
  - ANGIOIMMUNOBLASTIC T-CELL LYMPHOMA [None]
  - B-CELL LYMPHOMA [None]
  - MANTLE CELL LYMPHOMA [None]
  - MYELODYSPLASTIC SYNDROME [None]
  - NEOPLASM MALIGNANT [None]
